FAERS Safety Report 7783128-8 (Version None)
Quarter: 2011Q3

REPORT INFORMATION
  Report Type: 
  Country: None (occurrence: None)
  Receive Date: 20110928
  Receipt Date: 20110920
  Transmission Date: 20111222
  Serious: Yes (Other)
  Sender: FDA-Public Use
  Company Number: PHHY2011AU83327

PATIENT
  Sex: Female

DRUGS (2)
  1. RITALIN LA [Suspect]
  2. VALIUM [Suspect]
     Dosage: UNK

REACTIONS (2)
  - DRUG DEPENDENCE [None]
  - DRUG ABUSE [None]
